FAERS Safety Report 6663231-6 (Version None)
Quarter: 2010Q2

REPORT INFORMATION
  Report Type: 
  Country: None (occurrence: None)
  Receive Date: 20100401
  Receipt Date: 20100329
  Transmission Date: 20101027
  Serious: Yes (Hospitalization)
  Sender: FDA-Public Use
  Company Number: PHHO2009TW04900

PATIENT
  Sex: Male
  Weight: 71.1 kg

DRUGS (1)
  1. STI571/CGP57148B T35717+TAB [Suspect]
     Indication: CHRONIC MYELOID LEUKAEMIA
     Dosage: 800 MG, QD
     Route: 048
     Dates: start: 20060712, end: 20100317

REACTIONS (4)
  - CALCULUS URINARY [None]
  - LITHOTRIPSY [None]
  - URETERAL STENT INSERTION [None]
  - URETERIC STENOSIS [None]
